FAERS Safety Report 21412036 (Version 2)
Quarter: 2022Q4

REPORT INFORMATION
  Report Type: Other
  Country: US (occurrence: US)
  Receive Date: 20221005
  Receipt Date: 20221026
  Transmission Date: 20230113
  Serious: No
  Sender: FDA-Public Use
  Company Number: None

PATIENT
  Age: 76 Year
  Sex: Female
  Weight: 130 kg

DRUGS (3)
  1. METHYLPREDNISOLONE [Suspect]
     Active Substance: METHYLPREDNISOLONE
     Indication: Rheumatoid arthritis
     Dosage: 06 TABLETS IN THE 1 ST DAY AND EVERY DAY CUT DOWN BY ONE TABLET
     Route: 048
     Dates: start: 202208, end: 202208
  2. METHYLPREDNISOLONE [Suspect]
     Active Substance: METHYLPREDNISOLONE
     Indication: Fibromyalgia
     Dosage: EVERY DAY CUT DOWN BY ONE TABLET FROM PREVIOUS DAY^S DOSE
     Route: 048
     Dates: start: 202208, end: 202208
  3. METHYLPREDNISOLONE [Suspect]
     Active Substance: METHYLPREDNISOLONE
     Dosage: EVERY DAY CUT DOWN BY ONE TABLET FROM PREVIOUS DAY^S DOSE
     Route: 048
     Dates: start: 202208, end: 202208

REACTIONS (6)
  - Dizziness [Recovered/Resolved]
  - Diarrhoea [Recovered/Resolved]
  - Gastrooesophageal reflux disease [Recovered/Resolved]
  - Flatulence [Recovered/Resolved]
  - Product substitution issue [Unknown]
  - Therapeutic product effect delayed [Unknown]

NARRATIVE: CASE EVENT DATE: 20220801
